FAERS Safety Report 8654814 (Version 2)
Quarter: 2014Q3

REPORT INFORMATION
  Report Type: Spontaneous
  Country: US (occurrence: US)
  Receive Date: 20120709
  Receipt Date: 20140923
  Transmission Date: 20150326
  Serious: Yes (Death, Hospitalization)
  Sender: FDA-Public Use
  Company Number: US-GLAXOSMITHKLINE-A0877492A

PATIENT
  Sex: Male

DRUGS (1)
  1. AVANDIA [Suspect]
     Active Substance: ROSIGLITAZONE MALEATE
     Indication: TYPE 2 DIABETES MELLITUS
     Dosage: 8MG PER DAY
     Route: 048
     Dates: start: 1999, end: 20100517

REACTIONS (8)
  - Myocardial infarction [Fatal]
  - Coronary artery occlusion [Unknown]
  - Dizziness [Unknown]
  - Pulmonary oedema [Unknown]
  - Heart injury [Unknown]
  - Cardiac failure congestive [Unknown]
  - Atrioventricular block second degree [Unknown]
  - Cardiogenic shock [Fatal]
